FAERS Safety Report 7659704-X (Version None)
Quarter: 2011Q3

REPORT INFORMATION
  Report Type: 
  Country: None (occurrence: None)
  Receive Date: 20110805
  Receipt Date: 20100920
  Transmission Date: 20111222
  Serious: No
  Sender: FDA-Public Use
  Company Number: US-ABBOTT-10P-163-0665402-00

PATIENT
  Sex: Male
  Weight: 124.85 kg

DRUGS (2)
  1. DEPAKOTE ER [Suspect]
     Indication: BIPOLAR DISORDER
     Dosage: 500MG X 1 TAB IN AM, 2 TABS AT NIGHT
     Dates: start: 20050101
  2. CYMBALTA [Concomitant]
     Indication: BIPOLAR DISORDER

REACTIONS (7)
  - TOOTHACHE [None]
  - SENSITIVITY OF TEETH [None]
  - WEIGHT INCREASED [None]
  - GINGIVAL RECESSION [None]
  - DENTAL DISCOMFORT [None]
  - ALOPECIA [None]
  - BONE DENSITY DECREASED [None]
